FAERS Safety Report 21418202 (Version 1)
Quarter: 2022Q4

REPORT INFORMATION
  Report Type: Spontaneous
  Country: US (occurrence: None)
  Receive Date: 20221005
  Receipt Date: 20221005
  Transmission Date: 20230112
  Serious: No
  Sender: FDA-Public Use
  Company Number: None

PATIENT

DRUGS (1)
  1. LANTUS [Suspect]
     Active Substance: INSULIN GLARGINE
     Dosage: OTHER STRENGTH : 100 UNITS/ML;?

REACTIONS (3)
  - Therapy change [None]
  - Hyperglycaemia [None]
  - Product communication issue [None]
